FAERS Safety Report 20150239 (Version 1)
Quarter: 2021Q4

REPORT INFORMATION
  Report Type: Other
  Country: BR (occurrence: None)
  Receive Date: 20211206
  Receipt Date: 20211206
  Transmission Date: 20220303
  Serious: Yes (Other)
  Sender: FDA-Public Use
  Company Number: BR-ROCHE-2967135

PATIENT
  Sex: Female
  Weight: 81 kg

DRUGS (1)
  1. ACTEMRA [Suspect]
     Active Substance: TOCILIZUMAB
     Indication: Rheumatoid arthritis
     Route: 042
     Dates: start: 20151118

REACTIONS (3)
  - Diabetes mellitus [Unknown]
  - Bone deformity [Recovering/Resolving]
  - Hypertension [Unknown]
